FAERS Safety Report 16878159 (Version 1)
Quarter: 2019Q4

REPORT INFORMATION
  Report Type: Spontaneous
  Country: CA (occurrence: CA)
  Receive Date: 20191002
  Receipt Date: 20191002
  Transmission Date: 20200122
  Serious: Yes (Other)
  Sender: FDA-Public Use
  Company Number: CA-BAUSCH-BL-2019-055727

PATIENT
  Age: 50 Year
  Sex: Female
  Weight: 115 kg

DRUGS (1)
  1. WELLBUTRIN [Suspect]
     Active Substance: BUPROPION HYDROCHLORIDE
     Indication: DEPRESSION
     Dosage: EXTENDED RELEASE
     Route: 048

REACTIONS (7)
  - Tremor [Recovered/Resolved]
  - Screaming [Recovered/Resolved]
  - Sedation complication [Recovered/Resolved]
  - Blood pressure increased [Recovered/Resolved]
  - Insomnia [Recovered/Resolved]
  - Tension [Recovered/Resolved]
  - Heart rate increased [Recovered/Resolved]
